FAERS Safety Report 5774507-9 (Version None)
Quarter: 2008Q2

REPORT INFORMATION
  Report Type: 
  Country: None (occurrence: None)
  Receive Date: 20080616
  Receipt Date: 20080605
  Transmission Date: 20081010
  Serious: Yes (Other)
  Sender: FDA-Public Use
  Company Number: DE-PFIZER INC-2008048192

PATIENT
  Sex: Female

DRUGS (2)
  1. REVATIO [Suspect]
     Indication: PULMONARY ARTERIAL HYPERTENSION
     Route: 048
  2. TRACLEER [Suspect]
     Indication: PULMONARY ARTERIAL HYPERTENSION

REACTIONS (1)
  - TRANSAMINASES INCREASED [None]
